FAERS Safety Report 13835732 (Version 1)
Quarter: 2017Q3

REPORT INFORMATION
  Report Type: Spontaneous
  Country: IT (occurrence: IT)
  Receive Date: 20170804
  Receipt Date: 20170804
  Transmission Date: 20171127
  Serious: Yes (Other)
  Sender: FDA-Public Use
  Company Number: IT-BAYER-2017-143290

PATIENT
  Age: 73 Year
  Sex: Male

DRUGS (10)
  1. MINITRAN [Suspect]
     Active Substance: NITROGLYCERIN
  2. LANTUS [Concomitant]
     Active Substance: INSULIN GLARGINE
     Route: 058
  3. HUMALOG [Concomitant]
     Active Substance: INSULIN LISPRO
     Route: 042
  4. CARDURA [Suspect]
     Active Substance: DOXAZOSIN MESYLATE
     Route: 048
  5. IRBESARTAN. [Suspect]
     Active Substance: IRBESARTAN
     Route: 048
  6. CRESTOR [Concomitant]
     Active Substance: ROSUVASTATIN CALCIUM
  7. CARDIOASPIRIN 100 MG [Suspect]
     Active Substance: ASPIRIN
     Route: 048
  8. NORVASC [Suspect]
     Active Substance: AMLODIPINE BESYLATE
     Dosage: UNK
     Route: 048
  9. RANEXA [Suspect]
     Active Substance: RANOLAZINE
     Route: 048
  10. BISOPROLOL FUMARATE. [Suspect]
     Active Substance: BISOPROLOL FUMARATE
     Dosage: 1.25 MG, QD

REACTIONS (3)
  - Asthenia [Unknown]
  - Bradycardia [Unknown]
  - Hypotension [Unknown]

NARRATIVE: CASE EVENT DATE: 20170624
